FAERS Safety Report 26015767 (Version 1)
Quarter: 2025Q4

REPORT INFORMATION
  Report Type: Report from Study
  Country: US (occurrence: US)
  Receive Date: 20251109
  Receipt Date: 20251109
  Transmission Date: 20260117
  Serious: Yes (Death, Other)
  Sender: ABBVIE
  Company Number: US-ABBVIE-6538640

PATIENT
  Sex: Male

DRUGS (1)
  1. HUMIRA [Suspect]
     Active Substance: ADALIMUMAB
     Indication: Product used for unknown indication
     Route: 058

REACTIONS (6)
  - Death [Fatal]
  - General physical health deterioration [Unknown]
  - Implantable defibrillator insertion [Unknown]
  - Fall [Unknown]
  - Hip fracture [Unknown]
  - Thrombosis [Unknown]
